FAERS Safety Report 6423285-9 (Version None)
Quarter: 2009Q4

REPORT INFORMATION
  Report Type: 
  Country: None (occurrence: None)
  Receive Date: 20091102
  Receipt Date: 20091023
  Transmission Date: 20100525
  Serious: Yes (Other)
  Sender: FDA-Public Use
  Company Number: US-ELI_LILLY_AND_COMPANY-US200910006207

PATIENT
  Age: 62 Year
  Sex: Female

DRUGS (1)
  1. ZYPREXA [Suspect]
     Indication: IMPULSE-CONTROL DISORDER
     Dosage: 2.5 MG, UNK
     Route: 050
     Dates: start: 20091020, end: 20091022

REACTIONS (3)
  - GASTROSTOMY TUBE INSERTION [None]
  - INTENTIONAL DRUG MISUSE [None]
  - OFF LABEL USE [None]
